FAERS Safety Report 6494355-4 (Version None)
Quarter: 2009Q4

REPORT INFORMATION
  Report Type: 
  Country: None (occurrence: None)
  Receive Date: 20091209
  Receipt Date: 20091127
  Transmission Date: 20100525
  Serious: Yes (Hospitalization, Other)
  Sender: FDA-Public Use
  Company Number: GB-EBEWE-1828MTX09

PATIENT
  Age: 37 Year
  Sex: Female
  Weight: 94 kg

DRUGS (7)
  1. METHOTREXATE [Suspect]
     Indication: IMMUNOSUPPRESSION
     Dosage: 15 MG, QWEEK
  2. REMICADE [Suspect]
     Indication: RHEUMATOID ARTHRITIS
     Dosage: 285 MG, Q8 WEEKS, IV
     Route: 042
     Dates: start: 20030127, end: 20060313
  3. AMPICILLIN [Concomitant]
  4. DICLOFENAC SODIUM [Concomitant]
  5. FLOXACILLIN SODIUM [Concomitant]
  6. FOLIC ACID [Concomitant]
  7. TRAMADOL HCL [Concomitant]

REACTIONS (3)
  - SKIN INDURATION [None]
  - STAPHYLOCOCCAL ABSCESS [None]
  - SUBCUTANEOUS ABSCESS [None]
